FAERS Safety Report 22016680 (Version 5)
Quarter: 2025Q1

REPORT INFORMATION
  Report Type: Spontaneous
  Country: US (occurrence: US)
  Receive Date: 20230221
  Receipt Date: 20250214
  Transmission Date: 20250409
  Serious: No
  Sender: PFIZER
  Company Number: US-PFIZER INC-202300071878

PATIENT
  Age: 67 Year
  Sex: Female
  Weight: 74.4 kg

DRUGS (4)
  1. IBRANCE [Suspect]
     Active Substance: PALBOCICLIB
     Indication: Breast cancer stage IV
     Route: 048
     Dates: start: 20230203, end: 20241016
  2. LETROZOLE [Concomitant]
     Active Substance: LETROZOLE
  3. MAGNESIUM [Concomitant]
     Active Substance: MAGNESIUM
  4. SPIRULINA SPP. [Concomitant]

REACTIONS (8)
  - Constipation [Recovered/Resolved]
  - Full blood count decreased [Recovered/Resolved]
  - Malaise [Recovered/Resolved]
  - Oropharyngeal pain [Recovered/Resolved]
  - Headache [Recovered/Resolved]
  - Diarrhoea [Recovered/Resolved]
  - Nausea [Recovered/Resolved]
  - Dyspepsia [Recovered/Resolved]

NARRATIVE: CASE EVENT DATE: 20230415
